FAERS Safety Report 23880978 (Version 1)
Quarter: 2024Q2

REPORT INFORMATION
  Report Type: Spontaneous
  Country: US (occurrence: None)
  Receive Date: 20240521
  Receipt Date: 20240521
  Transmission Date: 20240716
  Serious: Yes (Hospitalization)
  Sender: FDA-Public Use
  Company Number: None

PATIENT
  Age: 79 Year
  Sex: Male

DRUGS (1)
  1. SPIRONOLACTONE [Suspect]
     Active Substance: SPIRONOLACTONE
     Indication: Cardiac failure congestive
     Dosage: FREQUENCY : DAILY;?
     Route: 048
     Dates: start: 20240308, end: 20240317

REACTIONS (5)
  - Hyperkalaemia [None]
  - Blood creatinine increased [None]
  - Arthralgia [None]
  - Acute kidney injury [None]
  - Cardiac failure [None]

NARRATIVE: CASE EVENT DATE: 20240317
